FAERS Safety Report 13973707 (Version 1)
Quarter: 2017Q3

REPORT INFORMATION
  Report Type: Spontaneous
  Country: JP (occurrence: JP)
  Receive Date: 20170915
  Receipt Date: 20170915
  Transmission Date: 20171128
  Serious: Yes (Other)
  Sender: FDA-Public Use
  Company Number: JP-BAYER-2017-176985

PATIENT
  Age: 78 Year
  Sex: Male
  Weight: 53.4 kg

DRUGS (6)
  1. GASMOTIN [Concomitant]
     Active Substance: MOSAPRIDE CITRATE
  2. ALLOZYM [Concomitant]
     Active Substance: ALLOPURINOL
  3. NORVASC [Concomitant]
     Active Substance: AMLODIPINE BESYLATE
  4. SENNOSIDE [Concomitant]
     Active Substance: SENNOSIDES
  5. BAYASPIRIN 100 MG [Suspect]
     Active Substance: ASPIRIN
     Dosage: UNK
     Route: 048
     Dates: start: 2005
  6. GASTER [Concomitant]
     Active Substance: FAMOTIDINE

REACTIONS (1)
  - Gastrointestinal ulcer [Not Recovered/Not Resolved]
